FAERS Safety Report 7731138-9 (Version None)
Quarter: 2011Q3

REPORT INFORMATION
  Report Type: 
  Country: None (occurrence: None)
  Receive Date: 20110906
  Receipt Date: 20110906
  Transmission Date: 20111222
  Serious: Yes (Life-Threatening, Other)
  Sender: FDA-Public Use
  Company Number: None

PATIENT
  Age: 78 Year
  Sex: Female
  Weight: 63.502 kg

DRUGS (1)
  1. PLAVIX [Suspect]
     Indication: TRANSIENT ISCHAEMIC ATTACK
     Dosage: 75 MG
     Route: 048
     Dates: start: 20110816, end: 20110902

REACTIONS (6)
  - AGEUSIA [None]
  - PRURITUS [None]
  - URTICARIA [None]
  - DRUG HYPERSENSITIVITY [None]
  - SWELLING FACE [None]
  - EYE SWELLING [None]
